FAERS Safety Report 9159758 (Version 1)
Quarter: 2013Q1

REPORT INFORMATION
  Report Type: Spontaneous
  Country: FR (occurrence: FR)
  Receive Date: 20130313
  Receipt Date: 20130313
  Transmission Date: 20140127
  Serious: Yes (Other)
  Sender: FDA-Public Use
  Company Number: FR-BRISTOL-MYERS SQUIBB COMPANY-17382466

PATIENT
  Age: 41 Year
  Sex: Male

DRUGS (1)
  1. ABILIFY [Suspect]
     Indication: SCHIZOAFFECTIVE DISORDER
     Dosage: 5MG;JAN-APR2012;?INCREASED 10MG IN APR12?RESTATED ON 01MAR13;10MG
     Route: 048
     Dates: start: 201106

REACTIONS (2)
  - Schizophrenia [Unknown]
  - Loss of libido [Unknown]
